FAERS Safety Report 5960877-5 (Version None)
Quarter: 2008Q4

REPORT INFORMATION
  Report Type: 
  Country: None (occurrence: None)
  Receive Date: 20081116
  Receipt Date: 20081113
  Transmission Date: 20090506
  Serious: Yes (Death, Hospitalization)
  Sender: FDA-Public Use
  Company Number: 2008SP017217

PATIENT
  Age: 69 Year
  Sex: Female
  Weight: 65 kg

DRUGS (5)
  1. TEMODAL [Suspect]
     Indication: GLIOBLASTOMA
     Dosage: 120 MG;QD;PO
     Route: 048
     Dates: end: 20080819
  2. FOSAVANCE [Concomitant]
  3. PROPRANOLOL [Concomitant]
  4. TANAKAN [Concomitant]
  5. KEPPRA [Concomitant]

REACTIONS (5)
  - BONE MARROW FAILURE [None]
  - DIARRHOEA [None]
  - FEBRILE NEUTROPENIA [None]
  - GENERAL PHYSICAL HEALTH DETERIORATION [None]
  - STAPHYLOCOCCAL SEPSIS [None]
